FAERS Safety Report 4744594-5 (Version None)
Quarter: 2005Q3

REPORT INFORMATION
  Report Type: 
  Country: None (occurrence: None)
  Receive Date: 20050808
  Receipt Date: 20040917
  Transmission Date: 20060218
  Serious: Yes (Other)
  Sender: FDA-Public Use
  Company Number: US-JNJFOC-20040907062

PATIENT
  Age: 15 Year
  Sex: Female

DRUGS (1)
  1. TYLENOL [Suspect]
     Indication: DRUG USE FOR UNKNOWN INDICATION
     Dosage: APPROXIMATELY 9,750 MG ONE TIME
     Dates: start: 20040917, end: 20040917

REACTIONS (1)
  - OVERDOSE [None]
